FAERS Safety Report 6702123-0 (Version None)
Quarter: 2010Q2

REPORT INFORMATION
  Report Type: 
  Country: None (occurrence: None)
  Receive Date: 20100429
  Receipt Date: 20100422
  Transmission Date: 20101027
  Serious: Yes (Other)
  Sender: FDA-Public Use
  Company Number: US-GENENTECH-300968

PATIENT
  Sex: Female

DRUGS (3)
  1. RITUXAN [Suspect]
     Indication: NON-HODGKIN'S LYMPHOMA
     Dosage: UNK
     Route: 042
  2. RITUXAN [Suspect]
     Dosage: UNK
     Route: 042
     Dates: start: 20090101
  3. CHEMOTHERAPY (UNK INGREDIENTS) [Concomitant]
     Indication: HODGKIN'S DISEASE

REACTIONS (1)
  - BLADDER CANCER [None]
